FAERS Safety Report 22391037 (Version 1)
Quarter: 2023Q2

REPORT INFORMATION
  Report Type: Spontaneous
  Country: CA (occurrence: CA)
  Receive Date: 20230601
  Receipt Date: 20230601
  Transmission Date: 20230722
  Serious: Yes (Disabling, Other)
  Sender: FDA-Public Use
  Company Number: CA-AMGEN-CANSP2023059157

PATIENT
  Age: 62 Year
  Sex: Male
  Weight: 55 kg

DRUGS (5)
  1. MVASI [Suspect]
     Active Substance: BEVACIZUMAB-AWWB
     Indication: Product used for unknown indication
     Dosage: UNK
     Route: 065
  2. LORBRENA [Suspect]
     Active Substance: LORLATINIB
     Indication: Non-small cell lung cancer
     Dosage: 100 MILLIGRAM, QD
     Route: 048
     Dates: start: 20200724
  3. LORBRENA [Suspect]
     Active Substance: LORLATINIB
     Dosage: 50 MILLIGRAM (ALTERNATE DAY)
     Route: 048
  4. LORBRENA [Suspect]
     Active Substance: LORLATINIB
     Dosage: 25 MILLIGRAM, BID
     Route: 048
  5. LEMBOREXANT [Concomitant]
     Active Substance: LEMBOREXANT

REACTIONS (17)
  - Road traffic accident [Unknown]
  - Neuropathy peripheral [Not Recovered/Not Resolved]
  - Myalgia [Not Recovered/Not Resolved]
  - Adverse drug reaction [Unknown]
  - Arthritis [Unknown]
  - Visual impairment [Unknown]
  - Depression [Recovering/Resolving]
  - General physical health deterioration [Unknown]
  - Gait disturbance [Unknown]
  - Discomfort [Unknown]
  - Loss of personal independence in daily activities [Unknown]
  - Malaise [Unknown]
  - Anxiety [Recovering/Resolving]
  - Chest pain [Unknown]
  - Headache [Unknown]
  - Asthenia [Unknown]
  - Arthralgia [Unknown]

NARRATIVE: CASE EVENT DATE: 20200101
